FAERS Safety Report 15159511 (Version 1)
Quarter: 2018Q3

REPORT INFORMATION
  Report Type: Spontaneous
  Country: SE (occurrence: SE)
  Receive Date: 20180718
  Receipt Date: 20180718
  Transmission Date: 20181010
  Serious: Yes (Death, Hospitalization)
  Sender: FDA-Public Use
  Company Number: SE-009507513-1807SWE004540

PATIENT
  Age: 45 Year
  Sex: Male

DRUGS (5)
  1. TEMODAL [Suspect]
     Active Substance: TEMOZOLOMIDE
     Dosage: 250 MG, UNK
     Route: 048
     Dates: start: 19990329, end: 19990528
  2. DIFLUCAN [Concomitant]
     Active Substance: FLUCONAZOLE
  3. TEGRETOL [Concomitant]
     Active Substance: CARBAMAZEPINE
  4. BETAPRED (BETAMETHASONE SODIUM PHOSPHATE) [Concomitant]
  5. NEURONTIN [Concomitant]
     Active Substance: GABAPENTIN

REACTIONS (1)
  - Pulmonary oedema [Fatal]

NARRATIVE: CASE EVENT DATE: 19990609
